FAERS Safety Report 15126372 (Version 1)
Quarter: 2018Q3

REPORT INFORMATION
  Report Type: Spontaneous
  Country: US (occurrence: US)
  Receive Date: 20180710
  Receipt Date: 20180710
  Transmission Date: 20181010
  Serious: Yes (Hospitalization)
  Sender: FDA-Public Use
  Company Number: US-CELGENEUS-USA-20180700824

PATIENT
  Age: 68 Year
  Sex: Female

DRUGS (3)
  1. VIDAZA [Suspect]
     Active Substance: AZACITIDINE
     Indication: MYELODYSPLASTIC SYNDROME
     Route: 041
     Dates: start: 20180524
  2. FT?2102 [Suspect]
     Active Substance: INVESTIGATIONAL PRODUCT
     Dosage: 300 MILLIGRAM
     Route: 048
     Dates: start: 20180611
  3. FT?2102 [Suspect]
     Active Substance: INVESTIGATIONAL PRODUCT
     Indication: MYELODYSPLASTIC SYNDROME
     Dosage: 300 MILLIGRAM
     Route: 048
     Dates: start: 20180524

REACTIONS (1)
  - Febrile neutropenia [Recovered/Resolved]

NARRATIVE: CASE EVENT DATE: 20180625
